FAERS Safety Report 6006845-9 (Version None)
Quarter: 2008Q4

REPORT INFORMATION
  Report Type: 
  Country: None (occurrence: None)
  Receive Date: 20081217
  Receipt Date: 20071031
  Transmission Date: 20090506
  Serious: No
  Sender: FDA-Public Use
  Company Number: US-ASTRAZENECA-2007UW25267

PATIENT
  Age: 73 Year
  Sex: Female
  Weight: 58.1 kg

DRUGS (5)
  1. CRESTOR [Suspect]
     Indication: HYPERCHOLESTEROLAEMIA
     Route: 048
     Dates: start: 20070901
  2. SINGULAIR [Concomitant]
  3. ADVAIR DISKUS 250/50 [Concomitant]
  4. SYNTHROID [Concomitant]
  5. FOSAMAX [Concomitant]

REACTIONS (3)
  - EAR PAIN [None]
  - HYPERHIDROSIS [None]
  - OROPHARYNGEAL PAIN [None]
